FAERS Safety Report 16579042 (Version 2)
Quarter: 2019Q3

REPORT INFORMATION
  Report Type: Report from Study
  Country: US (occurrence: US)
  Receive Date: 20190716
  Receipt Date: 20190816
  Transmission Date: 20191004
  Serious: Yes (Hospitalization)
  Sender: FDA-Public Use
  Company Number: US-PFIZER INC-2019288450

PATIENT
  Age: 4 Year
  Sex: Male
  Weight: 15.8 kg

DRUGS (5)
  1. ONDANSETRON [Concomitant]
     Active Substance: ONDANSETRON
     Indication: NAUSEA
     Dosage: 2 MG, QD
     Route: 048
     Dates: start: 20190529
  2. ONDANSETRON [Concomitant]
     Active Substance: ONDANSETRON
     Indication: VOMITING
  3. POLYETHYLENE GLYCOL [Concomitant]
     Active Substance: POLYETHYLENE GLYCOLS
     Indication: CONSTIPATION
     Dosage: 8.5 G, BID
     Route: 048
     Dates: start: 20190529
  4. SULFAMETHOXAZOLE/TRIMETHOPRIM [Concomitant]
     Indication: INFECTION
     Dosage: 40 MG, QD
     Route: 048
     Dates: start: 20190529
  5. LORLATINIB [Suspect]
     Active Substance: LORLATINIB
     Indication: NEUROBLASTOMA
     Dosage: 60 MG, ONCE PER DAY
     Route: 048
     Dates: start: 20190529, end: 20190722

REACTIONS (2)
  - Oedema peripheral [Recovered/Resolved]
  - Embolism [Recovered/Resolved]

NARRATIVE: CASE EVENT DATE: 20190630
